FAERS Safety Report 20043293 (Version 1)
Quarter: 2021Q4

REPORT INFORMATION
  Report Type: Report from Study
  Country: US (occurrence: None)
  Receive Date: 20211108
  Receipt Date: 20211108
  Transmission Date: 20220303
  Serious: Yes (Other)
  Sender: FDA-Public Use
  Company Number: US-Merck Healthcare KGaA-9276687

PATIENT
  Sex: Female

DRUGS (1)
  1. REBIF [Suspect]
     Active Substance: INTERFERON BETA-1A
     Indication: Multiple sclerosis
     Dosage: REBIF PREFILLED SYRINGE
     Route: 058
     Dates: start: 20190621

REACTIONS (7)
  - Cyst [Unknown]
  - Joint swelling [Unknown]
  - Arthritis [Unknown]
  - Plantar fasciitis [Unknown]
  - Gait disturbance [Unknown]
  - Balance disorder [Unknown]
  - Treatment noncompliance [Unknown]
